FAERS Safety Report 6200916-X (Version None)
Quarter: 2009Q2

REPORT INFORMATION
  Report Type: 
  Country: None (occurrence: None)
  Receive Date: 20090523
  Receipt Date: 20081114
  Transmission Date: 20091009
  Serious: Yes (Other)
  Sender: FDA-Public Use
  Company Number: US-ALEXION-A200800335

PATIENT
  Sex: Female

DRUGS (17)
  1. SOLIRIS [Suspect]
     Indication: PAROXYSMAL NOCTURNAL HAEMOGLOBINURIA
     Dosage: 600 MG, SINGLE
     Route: 042
     Dates: start: 20070619, end: 20070619
  2. SOLIRIS [Suspect]
     Dosage: 900 MG, Q2W
     Route: 042
     Dates: start: 20081007, end: 20081104
  3. ENOXAPARIN SODIUM [Concomitant]
  4. ESTRADIOL [Concomitant]
  5. PROGESTERONE [Concomitant]
  6. LEVOTHYROXINE SODIUM [Concomitant]
     Indication: HYPOTHYROIDISM
  7. PREDNISONE [Concomitant]
  8. TEMAZEPAM [Concomitant]
  9. EXJADE [Concomitant]
  10. AMITRIPTLINE HYDROCHLORIDE TAB [Concomitant]
  11. CALCITONIN [Concomitant]
  12. ASPIRIN [Concomitant]
     Dosage: 81 MG, UNK
  13. TYLENOL WITH CODEIN /00154101/ [Concomitant]
  14. FOLIC ACID [Concomitant]
  15. DOCUSATE [Concomitant]
     Indication: CONSTIPATION
  16. CALCIUM [Concomitant]
  17. VITAMIN A [Concomitant]

REACTIONS (2)
  - CATHETER SITE INFECTION [None]
  - STAPHYLOCOCCAL INFECTION [None]
